FAERS Safety Report 6801278-7 (Version None)
Quarter: 2010Q2

REPORT INFORMATION
  Report Type: 
  Country: None (occurrence: None)
  Receive Date: 20100629
  Receipt Date: 20100525
  Transmission Date: 20101027
  Serious: No
  Sender: FDA-Public Use
  Company Number: A0858692A

PATIENT
  Age: 45 Year
  Sex: Male
  Weight: 66.4 kg

DRUGS (4)
  1. LAMICTAL [Suspect]
     Indication: EPILEPSY
     Dosage: 50MG PER DAY
     Route: 048
     Dates: start: 20100426, end: 20100503
  2. ZYPREXA [Concomitant]
  3. TOPAMAX [Concomitant]
     Indication: DRUG USE FOR UNKNOWN INDICATION
     Dosage: 100MG TWICE PER DAY
     Dates: start: 20070803
  4. KEPPRA XR [Concomitant]
     Indication: DRUG USE FOR UNKNOWN INDICATION
     Dosage: 1500MG AT NIGHT
     Dates: start: 20090603

REACTIONS (2)
  - PRURITUS [None]
  - RASH [None]
